FAERS Safety Report 12670800 (Version 3)
Quarter: 2017Q4

REPORT INFORMATION
  Report Type: Spontaneous
  Country: US (occurrence: US)
  Receive Date: 20160822
  Receipt Date: 20171011
  Transmission Date: 20180320
  Serious: Yes (Other)
  Sender: FDA-Public Use
  Company Number: US-JAZZ-2016-US-006149

PATIENT
  Sex: Male

DRUGS (18)
  1. TRAZODONE HYDROCHLORIDE. [Concomitant]
     Active Substance: TRAZODONE HYDROCHLORIDE
  2. PROVIGIL [Concomitant]
     Active Substance: MODAFINIL
  3. TESTIM [Concomitant]
     Active Substance: TESTOSTERONE
  4. TRILEPTAL [Concomitant]
     Active Substance: OXCARBAZEPINE
  5. SUBOXONE [Concomitant]
     Active Substance: BUPRENORPHINE HYDROCHLORIDE\NALOXONE HYDROCHLORIDE
  6. ABILIFY [Concomitant]
     Active Substance: ARIPIPRAZOLE
  7. DEXILANT [Concomitant]
     Active Substance: DEXLANSOPRAZOLE
  8. VYVANSE [Concomitant]
     Active Substance: LISDEXAMFETAMINE DIMESYLATE
  9. XYREM [Suspect]
     Active Substance: SODIUM OXYBATE
     Indication: CATAPLEXY
     Dosage: 4.5G, BID
     Route: 048
     Dates: start: 201411
  10. ADDERALL [Concomitant]
     Active Substance: AMPHETAMINE ASPARTATE\AMPHETAMINE SULFATE\DEXTROAMPHETAMINE SACCHARATE\DEXTROAMPHETAMINE SULFATE
  11. AXIRON [Concomitant]
     Active Substance: TESTOSTERONE
  12. LISINOPRIL. [Concomitant]
     Active Substance: LISINOPRIL
  13. PROPRANOLOL [Concomitant]
     Active Substance: PROPRANOLOL HYDROCHLORIDE
  14. XYREM [Suspect]
     Active Substance: SODIUM OXYBATE
     Indication: NARCOLEPSY
     Dosage: 4.5G, BID
     Route: 048
     Dates: start: 200810, end: 2012
  15. CAPTOPRIL. [Concomitant]
     Active Substance: CAPTOPRIL
  16. LAMICTAL [Concomitant]
     Active Substance: LAMOTRIGINE
  17. AMBIEN [Concomitant]
     Active Substance: ZOLPIDEM TARTRATE
  18. ZYPREXA [Concomitant]
     Active Substance: OLANZAPINE

REACTIONS (9)
  - Head injury [Unknown]
  - Restlessness [Unknown]
  - Muscular weakness [Not Recovered/Not Resolved]
  - Cataplexy [Unknown]
  - Feeling abnormal [Not Recovered/Not Resolved]
  - Anxiety [Unknown]
  - Pain [Unknown]
  - Narcolepsy [Unknown]
  - Concussion [Unknown]
